FAERS Safety Report 10978809 (Version 1)
Quarter: 2015Q2

REPORT INFORMATION
  Report Type: Report from Study
  Country: US (occurrence: US)
  Receive Date: 20150402
  Receipt Date: 20150402
  Transmission Date: 20150821
  Serious: Yes (Hospitalization, Other)
  Sender: FDA-Public Use
  Company Number: US-GILEAD-2015-0145246

PATIENT
  Age: 72 Year
  Sex: Female

DRUGS (1)
  1. RANOLAZINE [Suspect]
     Active Substance: RANOLAZINE
     Indication: ANGINA PECTORIS
     Dosage: 500 MG, BID
     Route: 048
     Dates: start: 20141211, end: 20150322

REACTIONS (6)
  - Blood pressure increased [Unknown]
  - Fall [Unknown]
  - Loss of consciousness [Unknown]
  - Constipation [Unknown]
  - Joint injury [Unknown]
  - Headache [Unknown]

NARRATIVE: CASE EVENT DATE: 20141211
